FAERS Safety Report 8512051-6 (Version None)
Quarter: 2012Q2

REPORT INFORMATION
  Report Type: 
  Country: None (occurrence: None)
  Receive Date: 20120405
  Receipt Date: 20080902
  Transmission Date: 20120825
  Serious: Yes (Hospitalization)
  Sender: FDA-Public Use
  Company Number: PHEH2008US07051

PATIENT
  Age: 57 Year
  Sex: Female
  Weight: 69.4 kg

DRUGS (6)
  1. ATENOLOL [Concomitant]
  2. CALCIUM CARBONATE [Concomitant]
  3. RECLAST [Suspect]
     Indication: OSTEOPOROSIS POSTMENOPAUSAL
     Dosage: 5 MG, ONCE/SINGLE, INTRAVENOUS
     Route: 042
     Dates: start: 20080611
  4. OMEPRAZOLE [Concomitant]
  5. VITAMIN D [Concomitant]
  6. MULTIVITAMIN ^LAPPE^ (VITAMINS NOS) [Concomitant]

REACTIONS (2)
  - PALPITATIONS [None]
  - ATRIAL FIBRILLATION [None]
